FAERS Safety Report 8561017 (Version 2)
Quarter: 2015Q1

REPORT INFORMATION
  Report Type: Spontaneous
  Country: US (occurrence: US)
  Receive Date: 20120514
  Receipt Date: 20150223
  Transmission Date: 20150721
  Serious: Yes (Hospitalization, Congenital Anomaly, Other)
  Sender: FDA-Public Use
  Company Number: US-GLAXOSMITHKLINE-A0977195A

PATIENT
  Age: 0 Day
  Sex: Male
  Weight: 3.5 kg

DRUGS (3)
  1. PAXIL [Suspect]
     Active Substance: PAROXETINE HYDROCHLORIDE
     Indication: DEPRESSION
     Dosage: UNK
     Route: 064
     Dates: start: 20010822
  2. PAXIL [Suspect]
     Active Substance: PAROXETINE HYDROCHLORIDE
     Indication: ANXIETY
  3. KLONOPIN [Concomitant]
     Active Substance: CLONAZEPAM

REACTIONS (5)
  - Pulmonary haemosiderosis [Unknown]
  - Autism spectrum disorder [Unknown]
  - Pulmonary haemorrhage [Unknown]
  - Foetal exposure during pregnancy [Unknown]
  - Brain injury [Unknown]

NARRATIVE: CASE EVENT DATE: 20020523
